FAERS Safety Report 10066882 (Version 1)
Quarter: 2014Q2

REPORT INFORMATION
  Report Type: Spontaneous
  Country: FR (occurrence: FR)
  Receive Date: 20140408
  Receipt Date: 20140408
  Transmission Date: 20141212
  Serious: Yes (Other)
  Sender: FDA-Public Use
  Company Number: FR-ROCHE-1376434

PATIENT
  Age: 46 Year
  Sex: Female

DRUGS (1)
  1. XELODA [Suspect]
     Indication: SMALL INTESTINE CARCINOMA
     Route: 065

REACTIONS (4)
  - Visual acuity reduced [Not Recovered/Not Resolved]
  - Astigmatism [Not Recovered/Not Resolved]
  - Corneal dystrophy [Not Recovered/Not Resolved]
  - Dry eye [Not Recovered/Not Resolved]
